FAERS Safety Report 7952216-5 (Version None)
Quarter: 2011Q4

REPORT INFORMATION
  Report Type: 
  Country: None (occurrence: None)
  Receive Date: 20111201
  Receipt Date: 20111116
  Transmission Date: 20120403
  Serious: No
  Sender: FDA-Public Use
  Company Number: US-BAYER-2011-111887

PATIENT
  Age: 77 Year
  Sex: Female
  Weight: 54 kg

DRUGS (4)
  1. ANTIHYPERTENSIVES [Concomitant]
  2. LIPITOR [Concomitant]
  3. ALEVE (CAPLET) [Suspect]
     Indication: ANALGESIC THERAPY
     Dosage: TWICE DAILY
     Route: 048
  4. UNKNOWN [Concomitant]
     Indication: BLOOD IRON DECREASED

REACTIONS (1)
  - BLOOD IRON DECREASED [None]
